FAERS Safety Report 4909378-3 (Version None)
Quarter: 2006Q1

REPORT INFORMATION
  Report Type: 
  Country: None (occurrence: None)
  Receive Date: 20060213
  Receipt Date: 20060131
  Transmission Date: 20060701
  Serious: Yes (Hospitalization)
  Sender: FDA-Public Use
  Company Number: DE-JNJFOC-20050902671

PATIENT
  Sex: Female
  Weight: 55 kg

DRUGS (8)
  1. GALANTAMINE [Suspect]
     Route: 048
  2. ASPIRIN [Concomitant]
     Indication: CARDIOVASCULAR EVENT PROPHYLAXIS
  3. METOPROLOL SUCCINATE [Concomitant]
  4. LISINOPRIL [Concomitant]
  5. AMLODIPINE [Concomitant]
  6. LOCOL [Concomitant]
  7. ISMN [Concomitant]
  8. LANTUS OPTI SET [Concomitant]
     Indication: DIABETES MELLITUS
     Route: 058

REACTIONS (6)
  - AGITATION [None]
  - EXTRAPYRAMIDAL DISORDER [None]
  - HALLUCINATION [None]
  - INSOMNIA [None]
  - PSYCHOMOTOR HYPERACTIVITY [None]
  - VASCULAR DEMENTIA [None]
